FAERS Safety Report 17078081 (Version 7)
Quarter: 2020Q2

REPORT INFORMATION
  Report Type: Spontaneous
  Country: US (occurrence: US)
  Receive Date: 20191126
  Receipt Date: 20200602
  Transmission Date: 20200713
  Serious: Yes (Congenital Anomaly, Other)
  Sender: FDA-Public Use
  Company Number: NVSC2019US046760

PATIENT
  Sex: Male

DRUGS (1)
  1. ZOFRAN [Suspect]
     Active Substance: ONDANSETRON HYDROCHLORIDE
     Indication: FOETAL EXPOSURE DURING PREGNANCY
     Dosage: MOTHER DOSE: 1 DF, Q8H
     Route: 064

REACTIONS (34)
  - Dyspnoea [Unknown]
  - Testicular swelling [Unknown]
  - Aortic valve incompetence [Unknown]
  - Hernia [Unknown]
  - Fatigue [Unknown]
  - Bronchitis [Unknown]
  - Urinary tract infection [Unknown]
  - Postural orthostatic tachycardia syndrome [Unknown]
  - Headache [Unknown]
  - Heart rate abnormal [Unknown]
  - Dizziness [Unknown]
  - Scrotal mass [Unknown]
  - Fall [Unknown]
  - Bicuspid aortic valve [Unknown]
  - Bradycardia [Unknown]
  - Injury [Unknown]
  - Cardiac murmur [Unknown]
  - Pyrexia [Unknown]
  - Infection [Unknown]
  - Scrotal pain [Unknown]
  - Dysarthria [Unknown]
  - Supraventricular extrasystoles [Unknown]
  - Right ventricular hypertrophy [Unknown]
  - Coarctation of the aorta [Unknown]
  - Vascular stent stenosis [Unknown]
  - Aortic restenosis [Unknown]
  - Foetal exposure during pregnancy [Unknown]
  - Migraine [Unknown]
  - Congenital aortic stenosis [Unknown]
  - Autonomic nervous system imbalance [Unknown]
  - Upper respiratory tract infection [Unknown]
  - Hydrocele [Unknown]
  - Chest pain [Unknown]
  - Penile adhesion [Unknown]
